FAERS Safety Report 8541539-7 (Version None)
Quarter: 2012Q3

REPORT INFORMATION
  Report Type: 
  Country: None (occurrence: None)
  Receive Date: 20120726
  Receipt Date: 20120411
  Transmission Date: 20120928
  Serious: No
  Sender: FDA-Public Use
  Company Number: US-MUTUAL PHARMACEUTICAL COMPANY, INC.-CLCY20120062

PATIENT
  Age: 71 Year
  Sex: Female

DRUGS (2)
  1. COLCRYS [Suspect]
     Indication: GOUT
     Route: 048
     Dates: start: 20110101
  2. ULORIC [Suspect]
     Indication: PRODUCT USED FOR UNKNOWN INDICATION
     Route: 048
     Dates: end: 20120410

REACTIONS (3)
  - BLOOD CREATININE INCREASED [None]
  - DIVERTICULUM [None]
  - DIARRHOEA [None]
